FAERS Safety Report 6889122-3 (Version None)
Quarter: 2010Q3

REPORT INFORMATION
  Report Type: 
  Country: None (occurrence: None)
  Receive Date: 20100730
  Receipt Date: 20071222
  Transmission Date: 20110219
  Serious: No
  Sender: FDA-Public Use
  Company Number: US-PFIZER INC-2007079907

PATIENT
  Sex: Male
  Weight: 79.38 kg

DRUGS (6)
  1. ATROPINE SULFATE/DIPHENOXYLATE HCL (TABLET) [Suspect]
     Indication: IRRITABLE BOWEL SYNDROME
     Dates: start: 20020101
  2. LEVSIN [Concomitant]
  3. DONNATAL [Concomitant]
  4. GLYCERYL GUAIACOLATE [Concomitant]
  5. ACETAMINOPHEN [Concomitant]
  6. PEPCID [Concomitant]

REACTIONS (1)
  - UNEVALUABLE EVENT [None]
